FAERS Safety Report 6261270-0 (Version None)
Quarter: 2009Q3

REPORT INFORMATION
  Report Type: 
  Country: None (occurrence: None)
  Receive Date: 20090709
  Receipt Date: 20081014
  Transmission Date: 20100115
  Serious: No
  Sender: FDA-Public Use
  Company Number: US-KINGPHARMUSA00001-K200801197

PATIENT
  Sex: Female
  Weight: 39.456 kg

DRUGS (2)
  1. LEVOXYL [Suspect]
     Indication: MYXOEDEMA
     Dosage: 75 MCG, QOD
     Route: 048
  2. LEVOXYL [Suspect]
     Dosage: 88 MCG, QOD
     Route: 048

REACTIONS (2)
  - MENTAL DISORDER [None]
  - NERVOUSNESS [None]
